FAERS Safety Report 22763461 (Version 2)
Quarter: 2023Q4

REPORT INFORMATION
  Report Type: Spontaneous
  Country: US (occurrence: US)
  Receive Date: 20230730
  Receipt Date: 20231016
  Transmission Date: 20240110
  Serious: Yes (Other)
  Sender: FDA-Public Use
  Company Number: US-002147023-NVSC2023US163844

PATIENT
  Age: 74 Year
  Sex: Male
  Weight: 87 kg

DRUGS (82)
  1. KYMRIAH [Suspect]
     Active Substance: TISAGENLECLEUCEL
     Indication: Diffuse large B-cell lymphoma
     Dosage: 10 ML, ONCE/SINGLE (0.6X10E8-6.0X10E8 CAR POSITIVE VIABLE T CELLS, DAY 11 PLUS)
     Route: 042
     Dates: start: 20230612
  2. ACYCLOVIR [Concomitant]
     Active Substance: ACYCLOVIR
     Indication: Infection prophylaxis
     Dosage: 400 MG, BID (2 CAPSULES)
     Route: 048
     Dates: start: 20230612
  3. ACYCLOVIR [Concomitant]
     Active Substance: ACYCLOVIR
     Dosage: 400 MG, BID (1 TAB)
     Route: 048
  4. ALLOPURINOL [Concomitant]
     Active Substance: ALLOPURINOL
     Indication: Tumour lysis syndrome
     Dosage: 300 MG, QD (1 TAB, EVERY DAY)
     Route: 048
  5. ALLOPURINOL [Concomitant]
     Active Substance: ALLOPURINOL
     Dosage: 100 MG, QD (1 TAB, EVERY DAY)
     Route: 048
     Dates: start: 20230619
  6. ALLOPURINOL [Concomitant]
     Active Substance: ALLOPURINOL
     Dosage: 100 MG, QD (1 TAB, EVERY DAY)
     Route: 048
     Dates: start: 20230617
  7. ALLOPURINOL [Concomitant]
     Active Substance: ALLOPURINOL
     Dosage: 300 MG, QD (1 TAB, EVERY DAY)
     Route: 048
     Dates: start: 20230612
  8. ANAKINRA [Concomitant]
     Active Substance: ANAKINRA
     Indication: Product used for unknown indication
     Dosage: 100 MG, Q12H (SQ, SUBCUTANEOUS SOLUTION)
     Route: 058
  9. ANAKINRA [Concomitant]
     Active Substance: ANAKINRA
     Dosage: 100 MG, Q6H
     Route: 058
     Dates: start: 20230616
  10. ANAKINRA [Concomitant]
     Active Substance: ANAKINRA
     Dosage: 100 MG, Q12H
     Route: 058
     Dates: start: 20230622
  11. ANAKINRA [Concomitant]
     Active Substance: ANAKINRA
     Dosage: 100 MG=0.67 ML, Q12H (SQ)
     Route: 065
     Dates: start: 20230621
  12. ZOSYN [Concomitant]
     Active Substance: PIPERACILLIN SODIUM\TAZOBACTAM SODIUM
     Indication: Pathogen resistance
     Dosage: 4500 MG, (INFUSED 200ML PER HR OVER 30 MIN)
     Route: 042
     Dates: start: 20230615, end: 20230615
  13. ZOSYN [Concomitant]
     Active Substance: PIPERACILLIN SODIUM\TAZOBACTAM SODIUM
     Dosage: 4500 MG, Q8H (INFUSED 25ML PER HR OVER 4 HR)
     Route: 042
     Dates: start: 20230616, end: 20230622
  14. KEPPRA [Concomitant]
     Active Substance: LEVETIRACETAM
     Indication: Seizure prophylaxis
     Dosage: 1000 MG, BID
     Route: 048
  15. TIKOSYN [Concomitant]
     Active Substance: DOFETILIDE
     Indication: Atrial fibrillation
     Dosage: 1 DOSAGE FORM, BID
     Route: 065
     Dates: start: 20230612
  16. TIKOSYN [Concomitant]
     Active Substance: DOFETILIDE
     Indication: Coronary artery disease
  17. ASPIRIN [Concomitant]
     Active Substance: ASPIRIN
     Indication: Product used for unknown indication
     Dosage: UNK
     Route: 065
  18. MINERALS\VITAMINS [Concomitant]
     Active Substance: MINERALS\VITAMINS
     Indication: Product used for unknown indication
     Dosage: 1 DOSAGE FORM, QD
     Route: 048
     Dates: start: 20230612
  19. PEPCID [Concomitant]
     Active Substance: FAMOTIDINE
     Indication: Product used for unknown indication
     Dosage: 2 DOSAGE FORM, QHS (ORAL SOLID)
     Route: 048
     Dates: start: 20230612
  20. FLONASE [Concomitant]
     Active Substance: FLUTICASONE PROPIONATE
     Indication: Product used for unknown indication
     Dosage: 1 DOSAGE FORM, BID (50 MCG)
     Dates: start: 20230612
  21. CLARITIN [Concomitant]
     Active Substance: LORATADINE
     Indication: Product used for unknown indication
     Dosage: 1 DOSAGE FORM, QD (ORAL SOLID)
     Route: 048
     Dates: start: 20230612
  22. LEVETIRACETAM [Concomitant]
     Active Substance: LEVETIRACETAM
     Indication: Product used for unknown indication
     Dosage: 2 DOSAGE FORM, BID (ORAL SOLID)
     Route: 048
     Dates: start: 20230612
  23. CHOLESTYRAMINE [Concomitant]
     Active Substance: CHOLESTYRAMINE
     Indication: Product used for unknown indication
     Dosage: 1 PACKET POWDER EVERY DAY
     Route: 048
     Dates: start: 20230613
  24. FLUCONAZOLE [Concomitant]
     Active Substance: FLUCONAZOLE
     Indication: Infection prophylaxis
     Dosage: 2 DOSAGE FORM, QD (X30 DAYS, ORAL SOLID)
     Route: 048
     Dates: start: 20230612, end: 20230712
  25. CEFPODOXIME [Concomitant]
     Active Substance: CEFPODOXIME
     Indication: Infection prophylaxis
     Dosage: 1 DOSAGE FORM, BID
     Route: 048
     Dates: start: 20230613
  26. CEFPODOXIME [Concomitant]
     Active Substance: CEFPODOXIME
     Dosage: 1 DOSAGE FORM, BID
     Route: 048
     Dates: start: 20230622
  27. VITAMIN D3 [Concomitant]
     Active Substance: CHOLECALCIFEROL
     Indication: Product used for unknown indication
     Dosage: 1 DOSAGE FORM, QD (STRENGTH: 1000 UNIT, ORAL SOLID)
     Route: 048
     Dates: start: 20230614
  28. CARVEDILOL [Concomitant]
     Active Substance: CARVEDILOL
     Indication: Atrial fibrillation
     Dosage: 1 DOSAGE FORM, BID (ORAL SOLID)
     Route: 048
     Dates: start: 20230612
  29. CARVEDILOL [Concomitant]
     Active Substance: CARVEDILOL
     Indication: Coronary artery disease
  30. SODIUM CHLORIDE [Concomitant]
     Active Substance: SODIUM CHLORIDE
     Indication: Product used for unknown indication
     Dosage: 20 ML, Q12H (CENTRAL LINE FLUSH-NORMAL SALINE FLUSH)
     Route: 065
     Dates: start: 20230612
  31. SODIUM CHLORIDE [Concomitant]
     Active Substance: SODIUM CHLORIDE
     Dosage: 20 ML, PRN
     Route: 065
     Dates: start: 20230612
  32. SODIUM CHLORIDE [Concomitant]
     Active Substance: SODIUM CHLORIDE
     Dosage: 1000 ML, ONCE (OVER 3 HR)
     Route: 042
     Dates: start: 20230613, end: 20230613
  33. SODIUM CHLORIDE [Concomitant]
     Active Substance: SODIUM CHLORIDE
     Dosage: 1000 ML, ONCE (OVER 3 HR)
     Route: 042
     Dates: start: 20230615, end: 20230615
  34. SODIUM CHLORIDE [Concomitant]
     Active Substance: SODIUM CHLORIDE
     Dosage: 1000 ML, ONCE (OVER 3 HR)
     Route: 042
     Dates: start: 20230616, end: 20230616
  35. SODIUM CHLORIDE [Concomitant]
     Active Substance: SODIUM CHLORIDE
     Dosage: 100 ML, ONCE (OVER 3 HR)
     Route: 042
     Dates: start: 20230618, end: 20230618
  36. SODIUM CHLORIDE [Concomitant]
     Active Substance: SODIUM CHLORIDE
     Dosage: 1000 ML, ONCE (OVER 3 HR)
     Route: 042
     Dates: start: 20230621, end: 20230621
  37. SODIUM CHLORIDE [Concomitant]
     Active Substance: SODIUM CHLORIDE
     Dosage: 1000 ML, ONCE (OVER 3 HR)
     Route: 042
     Dates: start: 20230622, end: 20230622
  38. SODIUM CHLORIDE [Concomitant]
     Active Substance: SODIUM CHLORIDE
     Dosage: 100 ML, ONCE (OVER 3 HR)
     Route: 042
     Dates: start: 20230821, end: 20230821
  39. APIXABAN [Concomitant]
     Active Substance: APIXABAN
     Indication: Product used for unknown indication
     Dosage: 1 DOSAGE FORM, BID
     Route: 065
     Dates: start: 20230612
  40. DIPHENHYDRAMINE [Concomitant]
     Active Substance: DIPHENHYDRAMINE
     Indication: Pruritus
     Dosage: 1 DOSAGE FORM, Q4H (PRN ITCH, ORAL SOLID)
     Route: 048
     Dates: start: 20230612
  41. DIPHENHYDRAMINE [Concomitant]
     Active Substance: DIPHENHYDRAMINE
     Dosage: 12.5 MG, Q12H
     Route: 042
     Dates: start: 20230612, end: 20230612
  42. DIPHENHYDRAMINE [Concomitant]
     Active Substance: DIPHENHYDRAMINE
     Dosage: 1 DOSAGE FORM, ONCE
     Route: 048
     Dates: start: 20230918, end: 20230918
  43. DIPHENHYDRAMINE [Concomitant]
     Active Substance: DIPHENHYDRAMINE
     Dosage: 1 DOSAGE FORM, ONCE
     Route: 048
     Dates: start: 20230821, end: 20230821
  44. SALSALATE [Concomitant]
     Active Substance: SALSALATE
     Indication: Body temperature
     Dosage: 1 DOSAGE FORM, Q6H (PRN TEMPERATURE, ORAL SOLID)
     Route: 048
     Dates: start: 20230616
  45. FLOMAX [Concomitant]
     Active Substance: TAMSULOSIN HYDROCHLORIDE
     Indication: Product used for unknown indication
     Dosage: 1 DOSAGE FORM, QD (ORAL SOLID)
     Route: 048
     Dates: start: 20230612
  46. ASPIRIN [Concomitant]
     Active Substance: ASPIRIN
     Indication: Product used for unknown indication
     Dosage: 1 DOSAGE FORM, QD (ENETRIC-COATED TABLET)
     Route: 048
     Dates: start: 20230612
  47. ONDANSETRON [Concomitant]
     Active Substance: ONDANSETRON
     Indication: Nausea
     Dosage: 1 DOSAGE FORM, Q8H (DISSOLVED TABLET)
     Route: 048
     Dates: start: 20230612
  48. MAALOX ANTACID [Concomitant]
     Active Substance: ALUMINUM HYDROXIDE\DIMETHICONE\MAGNESIUM HYDROXIDE
     Indication: Dyspepsia
     Dosage: 30 ML, Q4H
     Route: 048
     Dates: start: 20230612
  49. CATHFLO ACTIVASE [Concomitant]
     Active Substance: ALTEPLASE
     Indication: Product used for unknown indication
     Dosage: 2 MG, ONCE/SINGLE (POWDER)
     Route: 042
     Dates: start: 20230612
  50. CATHFLO ACTIVASE [Concomitant]
     Active Substance: ALTEPLASE
     Dosage: 2 MG, ONCE/SINGLE (POWDER)
     Route: 042
     Dates: start: 20230617, end: 20230617
  51. CATHFLO ACTIVASE [Concomitant]
     Active Substance: ALTEPLASE
     Dosage: 2 MG, ONCE/SINGLE (POWDER)
     Route: 042
     Dates: start: 20230618, end: 20230618
  52. POTASSIUM CHLORIDE [Concomitant]
     Active Substance: POTASSIUM CHLORIDE
     Indication: Product used for unknown indication
     Dosage: 2 DOSAGE FORM, ONCE/SINGLE
     Route: 048
     Dates: start: 20230613, end: 20230613
  53. POTASSIUM CHLORIDE [Concomitant]
     Active Substance: POTASSIUM CHLORIDE
     Dosage: 1 DOSAGE FORM, ONCE/SINGLE
     Route: 048
     Dates: start: 20230615, end: 20230615
  54. POTASSIUM CHLORIDE [Concomitant]
     Active Substance: POTASSIUM CHLORIDE
     Dosage: 2 DOSAGE FORM, ONCE/SINGLE
     Route: 048
     Dates: start: 20230617, end: 20230617
  55. POTASSIUM CHLORIDE [Concomitant]
     Active Substance: POTASSIUM CHLORIDE
     Dosage: 1 DOSAGE FORM, ONCE/SINGLE
     Route: 048
     Dates: start: 20230616, end: 20230616
  56. POTASSIUM CHLORIDE [Concomitant]
     Active Substance: POTASSIUM CHLORIDE
     Dosage: 2 DOSAGE FORM, ONCE/SINGLE
     Route: 048
     Dates: start: 20230618, end: 20230618
  57. POTASSIUM CHLORIDE [Concomitant]
     Active Substance: POTASSIUM CHLORIDE
     Dosage: 2 DOSAGE FORM, ONCE/SINGLE
     Route: 048
     Dates: start: 20230620, end: 20230620
  58. POTASSIUM CHLORIDE [Concomitant]
     Active Substance: POTASSIUM CHLORIDE
     Dosage: 1 DOSAGE FORM, ONCE/SINGLE
     Route: 048
     Dates: start: 20230622, end: 20230622
  59. KINERET [Concomitant]
     Active Substance: ANAKINRA
     Indication: Product used for unknown indication
     Dosage: 100 MG/0.67 ML, SQPOM, Q6H
     Route: 065
     Dates: start: 20230612, end: 20230621
  60. VANCOMYCIN [Concomitant]
     Active Substance: VANCOMYCIN
     Indication: Bacteraemia
     Dosage: 2000 MG EQUAL TO 20 ML, QD, IVPB (1 EA, QD)
     Route: 065
     Dates: start: 20230617
  61. VANCOMYCIN [Concomitant]
     Active Substance: VANCOMYCIN
     Dosage: 1250 MG/12.5 ML, Q12H (IVPB)
     Route: 042
     Dates: start: 20230618
  62. IBUPROFEN [Concomitant]
     Active Substance: IBUPROFEN
     Indication: Product used for unknown indication
     Dosage: 200 MG (0.5 TAB), ONCE
     Route: 048
     Dates: start: 20230620, end: 20230620
  63. MAGNESIUM [Concomitant]
     Active Substance: MAGNESIUM
     Indication: Product used for unknown indication
     Dosage: 2 MG, Q2H, ONCE
     Route: 042
     Dates: start: 20230614, end: 20230614
  64. MAGNESIUM [Concomitant]
     Active Substance: MAGNESIUM
     Dosage: 2 MG, Q2H, ONCE
     Route: 042
     Dates: start: 20230616, end: 20230616
  65. MAGNESIUM [Concomitant]
     Active Substance: MAGNESIUM
     Dosage: 2 MG, Q2H, ONCE
     Route: 042
     Dates: start: 20230618, end: 20230618
  66. MAGNESIUM [Concomitant]
     Active Substance: MAGNESIUM
     Dosage: 2 MG, Q2H, ONCE
     Route: 042
     Dates: start: 20230620, end: 20230620
  67. ATIVAN [Concomitant]
     Active Substance: LORAZEPAM
     Indication: Product used for unknown indication
     Dosage: 1 MG, ONCE/SINGLE
     Route: 048
     Dates: start: 20230620, end: 20230620
  68. OXYCODONE [Concomitant]
     Active Substance: OXYCODONE
     Indication: Product used for unknown indication
     Dosage: 5 MG, ONCE/SINGLE (IMMIDIATE RELEASE TAB)
     Route: 048
     Dates: start: 20230619, end: 20230619
  69. K PHOS NEUTRAL [Concomitant]
     Active Substance: POTASSIUM PHOSPHATE, MONOBASIC\SODIUM PHOSPHATE, DIBASIC, ANHYDROUS\SODIUM PHOSPHATE, MONOBASIC, MON
     Indication: Product used for unknown indication
     Dosage: 1 DOSAGE FORM, QD
     Route: 048
     Dates: start: 20230616, end: 20230616
  70. ACETAMINOPHEN [Concomitant]
     Active Substance: ACETAMINOPHEN
     Indication: Product used for unknown indication
     Dosage: 2 DOSAGE FORM, Q12H
     Route: 048
     Dates: start: 20230612, end: 20230612
  71. ACETAMINOPHEN [Concomitant]
     Active Substance: ACETAMINOPHEN
     Dosage: 2 DOSAGE FORM, ONCE/SINGLE
     Route: 048
     Dates: start: 20230615, end: 20230615
  72. ACETAMINOPHEN [Concomitant]
     Active Substance: ACETAMINOPHEN
     Dosage: 2 DOSAGE FORM, ONCE/SINGLE
     Route: 048
     Dates: start: 20230821, end: 20230821
  73. ACETAMINOPHEN [Concomitant]
     Active Substance: ACETAMINOPHEN
     Dosage: 2 DOSAGE FORM, ONCE/SINGLE
     Route: 048
     Dates: start: 20230918, end: 20230918
  74. PRALUENT [Concomitant]
     Active Substance: ALIROCUMAB
     Indication: Product used for unknown indication
     Dosage: 75 MG/ ML, SQ, POM
     Route: 065
     Dates: start: 20230615, end: 20230615
  75. CHOLECALCIFEROL [Concomitant]
     Active Substance: CHOLECALCIFEROL
     Indication: Product used for unknown indication
     Dosage: 5 DOSAGE FORM (5000 UNIT), EVERYDAY
     Route: 048
     Dates: start: 20230612
  76. WELCHOL [Concomitant]
     Active Substance: COLESEVELAM HYDROCHLORIDE
     Indication: Product used for unknown indication
     Dosage: 625 MG, TID
     Route: 048
     Dates: start: 20230812
  77. CIPROFLOXACIN [Concomitant]
     Active Substance: CIPROFLOXACIN
     Indication: Febrile neutropenia
     Dosage: 1 DOSAGE FORM, Q12H
     Route: 048
     Dates: start: 20230612, end: 20230622
  78. PROCHLORPERAZINE [Concomitant]
     Active Substance: PROCHLORPERAZINE
     Indication: Nausea
     Dosage: 1 DOSAGE FORM, Q6H
     Route: 048
     Dates: start: 20230612
  79. IMUNOGLOBULIN [Concomitant]
     Indication: Product used for unknown indication
     Dosage: 40 MG (OVER 9.1 HR)
     Route: 042
     Dates: start: 20230821, end: 20230821
  80. IMUNOGLOBULIN [Concomitant]
     Dosage: 40 MG (OVER 9.1 HR)
     Route: 042
     Dates: start: 20230918, end: 20230918
  81. OLANZAPINE [Concomitant]
     Active Substance: OLANZAPINE
     Indication: Product used for unknown indication
     Dosage: 1 DOSAGE FORM, ONCE/SINGLE
     Route: 048
     Dates: start: 20230608, end: 20230608
  82. ELIQUIS [Concomitant]
     Active Substance: APIXABAN
     Indication: Product used for unknown indication
     Dosage: 1 DOSAGE FORM, BID
     Route: 048

REACTIONS (17)
  - Immune effector cell-associated neurotoxicity syndrome [Not Recovered/Not Resolved]
  - Platelet count decreased [Unknown]
  - Haemoglobin decreased [Unknown]
  - Cytokine release syndrome [Recovered/Resolved]
  - Pyrexia [Recovered/Resolved]
  - Interleukin level increased [Unknown]
  - C-reactive protein increased [Unknown]
  - Blood fibrinogen increased [Unknown]
  - Coagulopathy [Unknown]
  - Blood pressure diastolic increased [Unknown]
  - Atelectasis [Unknown]
  - Blood pressure systolic increased [Unknown]
  - Diarrhoea [Recovered/Resolved]
  - Weight decreased [Unknown]
  - Serum ferritin increased [Unknown]
  - Fibrin D dimer increased [Unknown]
  - Prothrombin time prolonged [Unknown]

NARRATIVE: CASE EVENT DATE: 20230612
